APPROVED DRUG PRODUCT: BAFIERTAM
Active Ingredient: MONOMETHYL FUMARATE
Strength: 95MG
Dosage Form/Route: CAPSULE, DELAYED RELEASE;ORAL
Application: N210296 | Product #001
Applicant: BANNER LIFE SCIENCES LLC
Approved: Apr 28, 2020 | RLD: Yes | RS: Yes | Type: RX

PATENTS:
Patent 11903918 | Expires: Feb 27, 2035
Patent 10918615 | Expires: Feb 27, 2035
Patent 10918616 | Expires: Feb 27, 2035
Patent 11590095 | Expires: Feb 27, 2035
Patent 9511043 | Expires: Feb 27, 2035
Patent 9326965 | Expires: Feb 27, 2035
Patent 9814692 | Expires: Feb 27, 2035
Patent 9636318 | Expires: Feb 27, 2035
Patent 9814691 | Expires: Feb 27, 2035
Patent 10105336 | Expires: Feb 27, 2035
Patent 9820961 | Expires: Feb 27, 2035
Patent 10098863 | Expires: Feb 27, 2035
Patent 9517209 | Expires: Feb 27, 2035
Patent 9566259 | Expires: Feb 27, 2035
Patent 9326947 | Expires: Feb 27, 2035
Patent 10105335 | Expires: Feb 27, 2035
Patent 10105337 | Expires: Feb 27, 2035
Patent 10918617 | Expires: Feb 27, 2035
Patent 9636319 | Expires: Feb 27, 2035
Patent 10945985 | Expires: Feb 27, 2035
Patent 9820960 | Expires: Feb 27, 2035